FAERS Safety Report 8201906-8 (Version None)
Quarter: 2012Q1

REPORT INFORMATION
  Report Type: 
  Country: None (occurrence: None)
  Receive Date: 20120312
  Receipt Date: 20120308
  Transmission Date: 20120608
  Serious: No
  Sender: FDA-Public Use
  Company Number: US-TEVA-326984USA

PATIENT
  Sex: Female

DRUGS (2)
  1. VITAMIN D [Suspect]
  2. ENJUVIA [Suspect]
     Route: 048

REACTIONS (2)
  - FATIGUE [None]
  - HORMONE LEVEL ABNORMAL [None]
